FAERS Safety Report 19116412 (Version 2)
Quarter: 2021Q2

REPORT INFORMATION
  Report Type: Spontaneous
  Country: SA (occurrence: SA)
  Receive Date: 20210409
  Receipt Date: 20210428
  Transmission Date: 20210717
  Serious: Yes (Hospitalization, Other)
  Sender: FDA-Public Use
  Company Number: SA-UCBSA-2021016187

PATIENT
  Age: 31 Year
  Sex: Male

DRUGS (4)
  1. VALPROIC ACID. [Suspect]
     Active Substance: VALPROIC ACID
     Dosage: ON GRADUAL DOSE
     Dates: end: 2018
  2. LEVETIRACETAM. [Suspect]
     Active Substance: LEVETIRACETAM
     Dosage: ON GRADUAL DOSE
     Dates: end: 2018
  3. LEVETIRACETAM. [Suspect]
     Active Substance: LEVETIRACETAM
     Indication: PARTIAL SEIZURES
     Dosage: 1 GRAM
  4. VALPROIC ACID. [Suspect]
     Active Substance: VALPROIC ACID
     Indication: PARTIAL SEIZURES

REACTIONS (7)
  - Disorientation [Unknown]
  - Drug withdrawal headache [Unknown]
  - Drug ineffective [Unknown]
  - Writer^s cramp [Unknown]
  - Withdrawal syndrome [Unknown]
  - Seizure [Recovering/Resolving]
  - Palpitations [Unknown]

NARRATIVE: CASE EVENT DATE: 2018
